FAERS Safety Report 21832909 (Version 3)
Quarter: 2023Q1

REPORT INFORMATION
  Report Type: Other
  Country: TR (occurrence: None)
  Receive Date: 20230106
  Receipt Date: 20230227
  Transmission Date: 20230418
  Serious: Yes (Death)
  Sender: FDA-Public Use
  Company Number: TR-ROCHE-3133713

PATIENT
  Age: 79 Year
  Sex: Male
  Weight: 80 kg

DRUGS (14)
  1. MOSUNETUZUMAB [Suspect]
     Active Substance: MOSUNETUZUMAB
     Indication: Follicular lymphoma
     Dosage: 1 VIAL MOSUNETUZUMAN OF 30 MG /30 ML?ON 16/JUN/2022, 23/JUN/2022, 07/JUL/2022, 28/JUL/2022, 18/AUG/2
     Route: 042
     Dates: start: 20220609, end: 20221110
  2. MOSUNETUZUMAB [Suspect]
     Active Substance: MOSUNETUZUMAB
     Dosage: 8TH DAY
     Route: 065
     Dates: start: 20220616
  3. MOSUNETUZUMAB [Suspect]
     Active Substance: MOSUNETUZUMAB
     Dosage: 15TH DAY
     Route: 065
     Dates: start: 20220623
  4. MOSUNETUZUMAB [Suspect]
     Active Substance: MOSUNETUZUMAB
     Route: 065
     Dates: start: 20220908
  5. MOSUNETUZUMAB [Suspect]
     Active Substance: MOSUNETUZUMAB
     Route: 065
     Dates: start: 20220609
  6. MOSUNETUZUMAB [Suspect]
     Active Substance: MOSUNETUZUMAB
     Route: 065
     Dates: start: 20220707
  7. MOSUNETUZUMAB [Suspect]
     Active Substance: MOSUNETUZUMAB
     Route: 065
     Dates: start: 20220728
  8. MOSUNETUZUMAB [Suspect]
     Active Substance: MOSUNETUZUMAB
     Route: 065
     Dates: start: 20220818
  9. MOSUNETUZUMAB [Suspect]
     Active Substance: MOSUNETUZUMAB
     Route: 065
     Dates: start: 20220929
  10. MOSUNETUZUMAB [Suspect]
     Active Substance: MOSUNETUZUMAB
     Route: 065
     Dates: start: 20221020
  11. MOSUNETUZUMAB [Suspect]
     Active Substance: MOSUNETUZUMAB
     Route: 065
     Dates: start: 20221110
  12. MOSUNETUZUMAB [Suspect]
     Active Substance: MOSUNETUZUMAB
     Dosage: C9
     Route: 042
     Dates: start: 20220609, end: 20221209
  13. ASPIRIN [Concomitant]
     Active Substance: ASPIRIN
  14. ALDACTAZIDE [Concomitant]
     Active Substance: HYDROCHLOROTHIAZIDE\SPIRONOLACTONE

REACTIONS (6)
  - Infusion related reaction [Recovered/Resolved]
  - Pyrexia [Unknown]
  - Somnolence [Unknown]
  - Agitation [Unknown]
  - Pyrexia [Fatal]
  - Somnolence [Fatal]

NARRATIVE: CASE EVENT DATE: 20221206
